FAERS Safety Report 15919789 (Version 1)
Quarter: 2019Q1

REPORT INFORMATION
  Report Type: Spontaneous
  Country: US (occurrence: US)
  Receive Date: 20190205
  Receipt Date: 20190205
  Transmission Date: 20190417
  Serious: No
  Sender: FDA-Public Use
  Company Number: US-ROCHE-2129628

PATIENT
  Sex: Male

DRUGS (1)
  1. XOLAIR [Suspect]
     Active Substance: OMALIZUMAB
     Indication: HYPERSENSITIVITY
     Route: 065
     Dates: start: 20180521, end: 20180521

REACTIONS (3)
  - Pyrexia [Unknown]
  - Diarrhoea [Unknown]
  - Dehydration [Unknown]
